FAERS Safety Report 8452965-9 (Version None)
Quarter: 2012Q2

REPORT INFORMATION
  Report Type: 
  Country: None (occurrence: None)
  Receive Date: 20120620
  Receipt Date: 20120503
  Transmission Date: 20120825
  Serious: No
  Sender: FDA-Public Use
  Company Number: US-VERTEX PHARMACEUTICALS INC.-AE-2012-006385

PATIENT
  Sex: Female
  Weight: 81.72 kg

DRUGS (8)
  1. PEGASYS [Concomitant]
     Indication: HEPATITIS C
     Route: 058
     Dates: start: 20120501
  2. RIBAVIRIN [Concomitant]
     Indication: HEPATITIS C
     Route: 048
     Dates: start: 20120501
  3. INCIVEK [Suspect]
     Indication: HEPATITIS C
     Route: 048
     Dates: start: 20120501
  4. CELEXA [Concomitant]
     Indication: DEPRESSION
     Route: 048
  5. EXFORGE [Concomitant]
     Indication: HYPERTENSION
     Route: 048
  6. IBUPROFEN (ADVIL) [Concomitant]
     Indication: PAIN
     Route: 048
  7. PRISTIQ [Concomitant]
     Indication: DEPRESSION
     Route: 048
  8. VALTREX [Concomitant]
     Indication: HERPES VIRUS INFECTION
     Route: 048

REACTIONS (7)
  - PYREXIA [None]
  - PAIN [None]
  - NAUSEA [None]
  - HEART RATE INCREASED [None]
  - FEELING ABNORMAL [None]
  - CHILLS [None]
  - INSOMNIA [None]
